FAERS Safety Report 16829816 (Version 3)
Quarter: 2020Q2

REPORT INFORMATION
  Report Type: Report from Study
  Country: CA (occurrence: CA)
  Receive Date: 20190919
  Receipt Date: 20200513
  Transmission Date: 20200713
  Serious: Yes (Hospitalization)
  Sender: FDA-Public Use
  Company Number: CA-ACTELION-A-NJ2019-195655

PATIENT
  Sex: Female
  Weight: 63.49 kg

DRUGS (11)
  1. CALCIUM [Concomitant]
     Active Substance: CALCIUM
  2. SYNTHROID [Concomitant]
     Active Substance: LEVOTHYROXINE SODIUM
  3. AMIODARONE [Concomitant]
     Active Substance: AMIODARONE
  4. AZATHIOPRIN [Concomitant]
     Active Substance: AZATHIOPRINE
  5. FUROSEMIDE TEVA [Concomitant]
     Active Substance: FUROSEMIDE
     Dosage: 40 MG, QAM
  6. POTASSIUM [Concomitant]
     Active Substance: POTASSIUM
  7. FERROUS SULFATE. [Concomitant]
     Active Substance: FERROUS SULFATE
     Dosage: UNK, BID
  8. ADCIRCA [Concomitant]
     Active Substance: TADALAFIL
  9. OPSUMIT [Suspect]
     Active Substance: MACITENTAN
     Indication: PULMONARY ARTERIAL HYPERTENSION
     Dosage: 10 MG, QD
     Route: 048
     Dates: start: 20150501
  10. FUROSEMIDE TEVA [Concomitant]
     Active Substance: FUROSEMIDE
     Dosage: 80 MG, QD
  11. TOLOXIN [DIGOXIN] [Concomitant]
     Dosage: 0.062 UNK, QD

REACTIONS (7)
  - Abdominal distension [Not Recovered/Not Resolved]
  - Peripheral swelling [Recovered/Resolved]
  - Clostridium difficile infection [Not Recovered/Not Resolved]
  - Fluid retention [Recovered/Resolved]
  - Diarrhoea [Not Recovered/Not Resolved]
  - Dyspnoea [Recovered/Resolved]
  - Faeces discoloured [Not Recovered/Not Resolved]
